FAERS Safety Report 12663208 (Version 2)
Quarter: 2016Q3

REPORT INFORMATION
  Report Type: Spontaneous
  Country: US (occurrence: US)
  Receive Date: 20160818
  Receipt Date: 20160926
  Transmission Date: 20161109
  Serious: Yes (Death, Hospitalization, Other)
  Sender: FDA-Public Use
  Company Number: US-BRISTOL-MYERS SQUIBB COMPANY-BMS-2016-066539

PATIENT
  Sex: Male

DRUGS (5)
  1. FELODIPINE. [Concomitant]
     Active Substance: FELODIPINE
     Indication: PRODUCT USED FOR UNKNOWN INDICATION
     Dosage: UNK
     Route: 065
  2. OPDIVO [Suspect]
     Active Substance: NIVOLUMAB
     Indication: RENAL CANCER METASTATIC
     Dosage: 222 MG, Q2WK
     Route: 042
     Dates: start: 20160613, end: 20160613
  3. COUMADIN [Concomitant]
     Active Substance: WARFARIN SODIUM
     Indication: PRODUCT USED FOR UNKNOWN INDICATION
     Dosage: UNK
     Route: 065
  4. OPDIVO [Suspect]
     Active Substance: NIVOLUMAB
     Dosage: 222 MG, Q2WK
     Route: 042
     Dates: start: 20160627, end: 20160627
  5. OPDIVO [Suspect]
     Active Substance: NIVOLUMAB
     Dosage: 222 MG, Q2WK
     Route: 042
     Dates: start: 20160711, end: 20160711

REACTIONS (1)
  - Malignant neoplasm progression [Fatal]
